FAERS Safety Report 5841665-7 (Version None)
Quarter: 2008Q3

REPORT INFORMATION
  Report Type: 
  Country: None (occurrence: None)
  Receive Date: 20080812
  Receipt Date: 20080808
  Transmission Date: 20090109
  Serious: Yes (Hospitalization)
  Sender: FDA-Public Use
  Company Number: FR-AVENTIS-200812945FR

PATIENT
  Age: 77 Year
  Sex: Female

DRUGS (7)
  1. KETEK [Suspect]
     Indication: BRONCHITIS
     Route: 048
     Dates: start: 20080509, end: 20080510
  2. ASPIRIN [Concomitant]
     Indication: DRUG USE FOR UNKNOWN INDICATION
  3. THEOPHYLLINE [Concomitant]
     Indication: DRUG USE FOR UNKNOWN INDICATION
  4. VENTOLIN [Concomitant]
     Indication: DRUG USE FOR UNKNOWN INDICATION
  5. SOLUDECADRON [Concomitant]
     Indication: DRUG USE FOR UNKNOWN INDICATION
  6. CELESTENE                          /00008501/ [Concomitant]
     Indication: DRUG USE FOR UNKNOWN INDICATION
  7. SINTROM [Concomitant]
     Indication: DRUG USE FOR UNKNOWN INDICATION

REACTIONS (6)
  - ASTHENIA [None]
  - BRADYCARDIA [None]
  - DIPLOPIA [None]
  - DIZZINESS [None]
  - HYPOTENSION [None]
  - SOMNOLENCE [None]
